FAERS Safety Report 22636263 (Version 1)
Quarter: 2023Q2

REPORT INFORMATION
  Report Type: Spontaneous
  Country: NL (occurrence: NL)
  Receive Date: 20230623
  Receipt Date: 20230623
  Transmission Date: 20230722
  Serious: Yes (Hospitalization)
  Sender: FDA-Public Use
  Company Number: None

PATIENT
  Sex: Male
  Weight: 105 kg

DRUGS (9)
  1. ATORVASTATIN [Suspect]
     Active Substance: ATORVASTATIN
     Indication: Hypercholesterolaemia
     Dosage: 40 MILLIGRAM DAILY; 1 X PER DAY 1 PIECE  , BRAND NAME NOT SPECIFIED
     Dates: start: 20220112, end: 20230516
  2. ATORVASTATIN [Suspect]
     Active Substance: ATORVASTATIN
     Indication: Coronary artery disease
     Dosage: 20 MILLIGRAM DAILY; 1 X PER DAY 1 PIECE
     Dates: start: 2017, end: 20230516
  3. PIRFENIDONE [Suspect]
     Active Substance: PIRFENIDONE
     Indication: Idiopathic pulmonary fibrosis
     Dosage: 9 DOSAGE FORMS DAILY; 3X/DAY 3 TABLETS  , BRAND NAME NOT SPECIFIED
     Dates: start: 202304, end: 20230516
  4. PIRFENIDONE [Suspect]
     Active Substance: PIRFENIDONE
     Dosage: 7D 3X2
     Dates: start: 202304
  5. PIRFENIDONE [Suspect]
     Active Substance: PIRFENIDONE
     Dosage: 3X/DAY 3 TABLETS (AFTER CHARGING SCHEDULE; 7D 3X1; 7D 3X2)
     Dates: start: 20230403
  6. MONOCEDOCARD RETARD [Concomitant]
     Indication: Product used for unknown indication
     Dosage: ISOSORBIDE MONONITRATE
  7. PRADAXA [Concomitant]
     Active Substance: DABIGATRAN ETEXILATE MESYLATE
     Indication: Product used for unknown indication
     Dosage: DABIGATRAN ETEXILATE
  8. METOPROLOL SUCCINATE [Concomitant]
     Active Substance: METOPROLOL SUCCINATE
     Indication: Product used for unknown indication
     Dosage: BRAND NAME NOT SPECIFIED
  9. PANTOPRAZOLE SODIUM [Concomitant]
     Active Substance: PANTOPRAZOLE SODIUM
     Indication: Product used for unknown indication
     Dosage: BRAND NAME NOT SPECIFIED

REACTIONS (1)
  - Hepatic failure [Not Recovered/Not Resolved]
